FAERS Safety Report 6345755-4 (Version None)
Quarter: 2009Q3

REPORT INFORMATION
  Report Type: 
  Country: None (occurrence: None)
  Receive Date: 20090909
  Receipt Date: 20090904
  Transmission Date: 20100115
  Serious: Yes (Other)
  Sender: FDA-Public Use
  Company Number: GB-TEVA-208284ISR

PATIENT
  Sex: Female

DRUGS (5)
  1. BECLOMETASONE [Suspect]
     Indication: DRUG USE FOR UNKNOWN INDICATION
  2. LORATADINE [Suspect]
     Indication: DRUG USE FOR UNKNOWN INDICATION
  3. TWINRIX [Suspect]
     Indication: PROPHYLAXIS
     Dates: start: 20090512, end: 20090512
  4. TYPHOID VACCINE [Suspect]
     Indication: PROPHYLAXIS
     Dates: start: 20090512, end: 20090512
  5. YELLOW FEVER VACCINE [Suspect]
     Indication: PROPHYLAXIS
     Dates: start: 20090501, end: 20090501

REACTIONS (2)
  - ABORTION [None]
  - DRUG EXPOSURE DURING PREGNANCY [None]
